FAERS Safety Report 6669139-4 (Version None)
Quarter: 2010Q2

REPORT INFORMATION
  Report Type: 
  Country: None (occurrence: None)
  Receive Date: 20100406
  Receipt Date: 20100329
  Transmission Date: 20101027
  Serious: No
  Sender: FDA-Public Use
  Company Number: CA-AMGEN-QUU399742

PATIENT
  Sex: Female
  Weight: 83 kg

DRUGS (8)
  1. NPLATE [Suspect]
     Indication: IDIOPATHIC THROMBOCYTOPENIC PURPURA
     Route: 058
     Dates: start: 20100122
  2. CELEXA [Concomitant]
  3. TRAZODONE HCL [Concomitant]
  4. TRIAMIZIDE [Concomitant]
  5. FAMVIR [Concomitant]
  6. TEVETEN [Concomitant]
  7. ATIVAN [Concomitant]
  8. PREVACID [Concomitant]

REACTIONS (8)
  - DYSPEPSIA [None]
  - FEELING ABNORMAL [None]
  - HEADACHE [None]
  - HYPERACUSIS [None]
  - MUSCULOSKELETAL PAIN [None]
  - NEUROLOGICAL SYMPTOM [None]
  - PAIN IN EXTREMITY [None]
  - WEIGHT INCREASED [None]
